FAERS Safety Report 5570061-5 (Version None)
Quarter: 2007Q4

REPORT INFORMATION
  Report Type: 
  Country: None (occurrence: None)
  Receive Date: 20071218
  Receipt Date: 20071129
  Transmission Date: 20080405
  Serious: Yes (Hospitalization)
  Sender: FDA-Public Use
  Company Number: S07-FRA-06253-01

PATIENT
  Age: 60 Year
  Sex: Female

DRUGS (8)
  1. ESCITALOPRAM [Suspect]
     Indication: DEPRESSION
     Dosage: 2 UNK QD PO
     Route: 048
     Dates: end: 20070905
  2. ESCITALOPRAM [Suspect]
     Indication: DEPRESSION
     Dosage: 2 UNK UNK PO
     Route: 048
     Dates: start: 20071009
  3. NOCTRAN (CLORAZEPATE/ACEPROMAZINE/ACEPROMETAZINE) [Suspect]
     Indication: ANXIETY
     Dosage: 10 MG QD PO
     Route: 048
     Dates: end: 20070905
  4. NOCTRAN (CLORAZEPATE/ACEPROMAZINE/ACEPROMETAZINE) [Suspect]
     Indication: ANXIETY
     Dates: start: 20071009
  5. MEPRONIZINE (MEPROBAMATE/ACEPROMETAZINE) [Suspect]
     Indication: ANXIETY
     Dosage: 2 UNK QD PO
     Route: 048
     Dates: end: 20070905
  6. ZOLPIDEM [Concomitant]
  7. ZOCOR [Concomitant]
  8. LEVOTHYROXINE SODIUM [Concomitant]

REACTIONS (13)
  - AGITATION [None]
  - CONFUSIONAL STATE [None]
  - CSF PROTEIN INCREASED [None]
  - DYSKINESIA [None]
  - FALL [None]
  - GAIT DISTURBANCE [None]
  - GENERAL PHYSICAL HEALTH DETERIORATION [None]
  - GRAND MAL CONVULSION [None]
  - HALLUCINATION [None]
  - HYPONATRAEMIA [None]
  - PERSECUTORY DELUSION [None]
  - POST-TRAUMATIC AMNESTIC DISORDER [None]
  - THERAPY REGIMEN CHANGED [None]
